FAERS Safety Report 7530798-5 (Version None)
Quarter: 2011Q2

REPORT INFORMATION
  Report Type: 
  Country: None (occurrence: None)
  Receive Date: 20110607
  Receipt Date: 20110531
  Transmission Date: 20111010
  Serious: Yes (Other)
  Sender: FDA-Public Use
  Company Number: US-GENENTECH-316270

PATIENT
  Sex: Male

DRUGS (7)
  1. COMBIGAN [Concomitant]
     Indication: INTRAOCULAR PRESSURE INCREASED
     Dosage: 1 GTT, BID
     Route: 061
  2. MULTI-VITAMIN [Concomitant]
     Indication: PRODUCT USED FOR UNKNOWN INDICATION
     Dosage: 1 TABLET, QD
     Route: 048
  3. ALPHAGAN [Concomitant]
     Indication: INTRAOCULAR PRESSURE INCREASED
     Dosage: 1 GTT, BID
  4. LUCENTIS [Suspect]
     Indication: MACULAR OEDEMA
  5. AZOPT [Concomitant]
     Indication: INTRAOCULAR PRESSURE INCREASED
     Dosage: 1 GTT, BID
     Route: 061
  6. LUCENTIS [Suspect]
     Indication: RETINAL VEIN OCCLUSION
     Dosage: 0.05 MG, X1
     Route: 031
     Dates: start: 20110329
  7. ASPIRIN [Concomitant]
     Indication: PRODUCT USED FOR UNKNOWN INDICATION
     Route: 048

REACTIONS (7)
  - BLINDNESS [None]
  - HYPERCHOLESTEROLAEMIA [None]
  - RETINAL VEIN OCCLUSION [None]
  - VISION BLURRED [None]
  - EYE DISORDER [None]
  - VISUAL ACUITY REDUCED [None]
  - RETINAL INJURY [None]
